FAERS Safety Report 5876378-9 (Version None)
Quarter: 2008Q3

REPORT INFORMATION
  Report Type: 
  Country: None (occurrence: None)
  Receive Date: 20080910
  Receipt Date: 20080905
  Transmission Date: 20090109
  Serious: Yes (Hospitalization, Other)
  Sender: FDA-Public Use
  Company Number: US-BAYER-200826576NA

PATIENT
  Age: 26 Year
  Sex: Female
  Weight: 119 kg

DRUGS (1)
  1. MIRENA [Suspect]
     Indication: CONTRACEPTION
     Route: 015
     Dates: start: 20061101, end: 20080623

REACTIONS (1)
  - ECTOPIC PREGNANCY WITH INTRAUTERINE DEVICE [None]
